FAERS Safety Report 15646981 (Version 3)
Quarter: 2019Q1

REPORT INFORMATION
  Report Type: Spontaneous
  Country: GB (occurrence: GB)
  Receive Date: 20181122
  Receipt Date: 20190119
  Transmission Date: 20190417
  Serious: Yes (Life-Threatening, Hospitalization, Other)
  Sender: FDA-Public Use
  Company Number: GB-DRREDDYS-GER/UKI/18/0105562

PATIENT
  Age: 29 Year
  Sex: Female

DRUGS (28)
  1. ALBUTEROL                          /00139501/ [Suspect]
     Active Substance: ALBUTEROL
     Indication: ASTHMA
     Dosage: UNK
     Route: 042
  2. EPINEPHRINE. [Suspect]
     Active Substance: EPINEPHRINE
     Indication: ASTHMA
     Dosage: 350 MCG, UNK (DILUTED IN SMALL INCREMENTS)
     Route: 065
  3. PREDNISOLONE. [Suspect]
     Active Substance: PREDNISOLONE
     Dosage: UNK
     Route: 048
  4. SALBUTAMOL [Suspect]
     Active Substance: ALBUTEROL
     Route: 042
  5. SEVOFLURANE. [Suspect]
     Active Substance: SEVOFLURANE
     Dosage: 8 %, UNK
     Route: 055
  6. MONTELUKAST [Suspect]
     Active Substance: MONTELUKAST SODIUM
     Indication: ASTHMA
     Route: 048
  7. IPRATROPIUM BROMIDE. [Suspect]
     Active Substance: IPRATROPIUM BROMIDE
     Indication: ASTHMA
     Dosage: 0.5 MG, UNK (NEBULISATION)
     Route: 065
  8. SALBUTAMOL [Suspect]
     Active Substance: ALBUTEROL
     Dosage: 12.3 MG, UNK
     Route: 042
  9. PREDNISOLONE. [Concomitant]
     Active Substance: PREDNISOLONE
     Indication: ASTHMA
     Dosage: 30 MG, UNK
     Route: 065
  10. EPINEPHRINE. [Suspect]
     Active Substance: EPINEPHRINE
     Dosage: DILUTED IN SMALL INCREMENTS
     Route: 065
  11. PREDNISOLONE. [Suspect]
     Active Substance: PREDNISOLONE
     Dosage: 30 MG, UNK
     Route: 048
  12. THEOPHYLLIN [Suspect]
     Active Substance: THEOPHYLLINE ANHYDROUS
     Dosage: UNK
     Route: 065
  13. PREDNISOLONE. [Suspect]
     Active Substance: PREDNISOLONE
     Indication: ASTHMA
     Dosage: UNK
  14. SALBUTAMOL [Suspect]
     Active Substance: ALBUTEROL
     Dosage: 250 MCG, UNK (2 BOLUSES)
     Route: 040
  15. IPRATROPIUM BROMIDE. [Suspect]
     Active Substance: IPRATROPIUM BROMIDE
     Dosage: 0.5 MG, UNK
     Route: 065
  16. KETAMINE [Suspect]
     Active Substance: KETAMINE
     Indication: ASTHMA
     Dosage: UNK (INCREASED TO 45 MICROG/KG/MIN)
     Route: 042
  17. MAGNESIUM SULFATE. [Suspect]
     Active Substance: MAGNESIUM SULFATE
     Indication: ASTHMA
     Dosage: 2 G, UNK
     Route: 042
  18. HYDROCORTISONE. [Suspect]
     Active Substance: HYDROCORTISONE
     Indication: ASTHMA
     Dosage: 100 MG, UNK
     Route: 042
  19. SALBUTAMOL [Suspect]
     Active Substance: ALBUTEROL
     Indication: ASTHMA
     Dosage: UNK ((NEBULISER)
     Route: 065
  20. SALBUTAMOL [Suspect]
     Active Substance: ALBUTEROL
     Dosage: 15 MG, UNK ((NEBULISER : IN REPEATED DOSES)
     Route: 042
  21. THEOPHYLLIN [Suspect]
     Active Substance: THEOPHYLLINE ANHYDROUS
     Dosage: UNK
     Route: 065
  22. KETAMINE [Suspect]
     Active Substance: KETAMINE
     Dosage: INCREASED TO 45 MICROG/KG/MIN
     Route: 042
  23. SALBUTAMOL [Suspect]
     Active Substance: ALBUTEROL
     Dosage: 2 BOLUSES
     Route: 040
  24. THEOPHYLLIN [Suspect]
     Active Substance: THEOPHYLLINE ANHYDROUS
     Route: 065
  25. MAGNESIUM SULFATE. [Concomitant]
     Active Substance: MAGNESIUM SULFATE
     Indication: ASTHMA
     Dosage: UNK
  26. SALBUTAMOL [Suspect]
     Active Substance: ALBUTEROL
     Dosage: 15 MG, UNK (NEBULISATION)
     Route: 042
  27. SEVOFLURANE. [Suspect]
     Active Substance: SEVOFLURANE
     Indication: ASTHMA
     Dosage: UNK
     Route: 055
  28. THEOPHYLLIN [Suspect]
     Active Substance: THEOPHYLLINE ANHYDROUS
     Indication: ASTHMA
     Route: 065

REACTIONS (21)
  - Status asthmaticus [Recovered/Resolved]
  - Cyanosis [Recovering/Resolving]
  - Dyspnoea [Recovering/Resolving]
  - Drug ineffective [Recovering/Resolving]
  - Drug ineffective [Unknown]
  - Hypercapnia [Recovering/Resolving]
  - Oxygen saturation decreased [Recovering/Resolving]
  - Wheezing [Recovering/Resolving]
  - PO2 decreased [Recovering/Resolving]
  - Airway peak pressure increased [Recovering/Resolving]
  - Bronchospasm [Recovering/Resolving]
  - Asthma [Recovered/Resolved]
  - Off label use [Unknown]
  - Respiratory rate increased [Recovering/Resolving]
  - Acute respiratory failure [Recovered/Resolved]
  - Blood lactic acid increased [Recovering/Resolving]
  - PCO2 increased [Recovering/Resolving]
  - Blood bicarbonate decreased [Recovering/Resolving]
  - Lung hyperinflation [Recovering/Resolving]
  - Respiratory acidosis [Recovering/Resolving]
  - Blood pH decreased [Recovering/Resolving]
